FAERS Safety Report 17399293 (Version 2)
Quarter: 2020Q1

REPORT INFORMATION
  Report Type: Spontaneous
  Country: IT (occurrence: IT)
  Receive Date: 20200211
  Receipt Date: 20200326
  Transmission Date: 20200409
  Serious: Yes (Other)
  Sender: FDA-Public Use
  Company Number: IT-SUN PHARMACEUTICAL INDUSTRIES LTD-2020RR-236246

PATIENT
  Age: 68 Year
  Sex: Female

DRUGS (19)
  1. CAPECITABINE. [Suspect]
     Active Substance: CAPECITABINE
     Indication: METASTASES TO ADRENALS
     Dosage: ()
     Route: 065
  2. CYCLOPHOSPHAMIDE. [Suspect]
     Active Substance: CYCLOPHOSPHAMIDE
     Indication: CHEMOTHERAPY
     Dosage: UNK
     Route: 065
     Dates: start: 201306, end: 201311
  3. DOXORUBICIN [Suspect]
     Active Substance: DOXORUBICIN
     Indication: CHEMOTHERAPY
     Dosage: UNK
     Route: 065
     Dates: start: 201306, end: 201311
  4. CAPECITABINE. [Suspect]
     Active Substance: CAPECITABINE
     Indication: NEUROENDOCRINE BREAST TUMOUR
     Dosage: 2000 MILLIGRAM/SQ. METER, DAILY, DAY 1-14, EVERY 28 DAYS FOR 4 CYCLES
     Route: 048
     Dates: start: 201504, end: 2015
  5. ETOPOSIDE. [Suspect]
     Active Substance: ETOPOSIDE
     Indication: CHEMOTHERAPY
     Dosage: UNK
     Route: 065
     Dates: start: 201011, end: 201103
  6. VINCRISTINE [Suspect]
     Active Substance: VINCRISTINE
     Indication: CHEMOTHERAPY
     Dosage: UNK
     Route: 065
     Dates: start: 201306, end: 201311
  7. TEMOZOLOMIDE. [Suspect]
     Active Substance: TEMOZOLOMIDE
     Indication: METASTASES TO LIVER
     Dosage: ()
     Route: 065
  8. CAPECITABINE. [Suspect]
     Active Substance: CAPECITABINE
     Indication: METASTASES TO LUNG
     Dosage: ()
     Route: 065
  9. CISPLATIN. [Suspect]
     Active Substance: CISPLATIN
     Indication: CHEMOTHERAPY
     Dosage: UNK
     Route: 065
     Dates: start: 201011, end: 201103
  10. TEMOZOLOMIDE. [Suspect]
     Active Substance: TEMOZOLOMIDE
     Indication: METASTASES TO CENTRAL NERVOUS SYSTEM
     Dosage: ()
     Route: 065
  11. TEMOZOLOMIDE. [Suspect]
     Active Substance: TEMOZOLOMIDE
     Indication: METASTASES TO ADRENALS
     Dosage: ()
     Route: 065
  12. TEMOZOLOMIDE. [Suspect]
     Active Substance: TEMOZOLOMIDE
     Indication: NEUROENDOCRINE BREAST TUMOUR
     Dosage: 200 MILLIGRAM/SQ. METER, ONCE DAILY, DAY 10-14, EVERY 28 DAYS FOR 4 CYCLES
     Route: 048
     Dates: start: 201504, end: 2015
  13. TEMOZOLOMIDE. [Suspect]
     Active Substance: TEMOZOLOMIDE
     Indication: METASTASES TO LYMPH NODES
     Dosage: 50% DOSE REDUCTION (100 MILLIGRAM/SQ. METER, ONCE DAILY, DAY 10-14, EVERY 28 DAYS) FOR A FURTHER TWO
     Route: 048
     Dates: start: 2015, end: 201601
  14. CAPECITABINE. [Suspect]
     Active Substance: CAPECITABINE
     Indication: METASTASES TO LYMPH NODES
     Dosage: 50% DOSE REDUCTION (1000 MILLIGRAM/SQ. METER, ONCE DAILY, DAY 1-14, EVERY 28 DAYS) FOR A FURTHER ...
     Route: 048
     Dates: start: 2015, end: 201601
  15. TEMOZOLOMIDE. [Suspect]
     Active Substance: TEMOZOLOMIDE
     Indication: METASTASES TO BONE
     Dosage: 25% DOSE REDUCTION (150 MILLIGRAM/SQ. METER, ONCE DAILY, DAY 10-14, EVERY 28 DAYS) FOR A FURTHER TWO
     Route: 048
     Dates: start: 2015, end: 2015
  16. CAPECITABINE. [Suspect]
     Active Substance: CAPECITABINE
     Indication: METASTASES TO BONE
     Dosage: 25% DOSE REDUCTION (1500MILLIGRAM/SQ. METER, ONCE DAILY, DAY 1-14, EVERY 28 DAYS) FOR A FURTHER T...
     Route: 048
     Dates: start: 2015, end: 2015
  17. CAPECITABINE. [Suspect]
     Active Substance: CAPECITABINE
     Indication: METASTASES TO CENTRAL NERVOUS SYSTEM
     Dosage: ()
     Route: 065
  18. TEMOZOLOMIDE. [Suspect]
     Active Substance: TEMOZOLOMIDE
     Indication: METASTASES TO LUNG
     Dosage: ()
     Route: 065
  19. CAPECITABINE. [Suspect]
     Active Substance: CAPECITABINE
     Indication: METASTASES TO LIVER
     Dosage: ()
     Route: 065

REACTIONS (7)
  - Haematological malignancy [Unknown]
  - Neurotoxicity [Unknown]
  - Fatigue [Unknown]
  - Off label use [Unknown]
  - Cognitive disorder [Unknown]
  - Thrombocytopenia [Unknown]
  - Therapeutic product effect incomplete [Unknown]

NARRATIVE: CASE EVENT DATE: 2015
